FAERS Safety Report 10026652 (Version 2)
Quarter: 2014Q1

REPORT INFORMATION
  Report Type: Spontaneous
  Country: FR (occurrence: FR)
  Receive Date: 20140321
  Receipt Date: 20140331
  Transmission Date: 20141002
  Serious: Yes (Hospitalization)
  Sender: FDA-Public Use
  Company Number: FR-009507513-1403FRA006645

PATIENT
  Age: 86 Year
  Sex: Female

DRUGS (2)
  1. JANUMET [Suspect]
     Indication: TYPE 2 DIABETES MELLITUS
     Dosage: 1 DF, QD
     Route: 048
     Dates: start: 2012, end: 20140113
  2. GLICLAZIDE [Suspect]
     Indication: TYPE 2 DIABETES MELLITUS
     Dosage: 2 DF, QAM
     Route: 048
     Dates: start: 2012, end: 20140113

REACTIONS (1)
  - Pemphigoid [Recovered/Resolved]
